FAERS Safety Report 20964714 (Version 1)
Quarter: 2022Q2

REPORT INFORMATION
  Report Type: Spontaneous
  Country: DE (occurrence: DE)
  Receive Date: 20220615
  Receipt Date: 20220615
  Transmission Date: 20220720
  Serious: Yes (Hospitalization)
  Sender: FDA-Public Use
  Company Number: DE-CELGENE-DEU-20210807947

PATIENT
  Age: 64 Year
  Sex: Female
  Weight: 57 kg

DRUGS (12)
  1. AZACITIDINE [Suspect]
     Active Substance: AZACITIDINE
     Indication: Myelodysplastic syndrome
     Dosage: FREQUENCY TEXT: CYCLE 1 DAYS 1-5, 8, 9?58.7 MILLIGRAM/SQ. METER?7 DAYS WITHIN THE FIRST 9 CALENDAR
     Route: 058
     Dates: start: 20210628, end: 20210810
  2. VENETOCLAX [Suspect]
     Active Substance: VENETOCLAX
     Indication: Myelodysplastic syndrome
     Dosage: FREQUENCY TEXT: NOT PROVIDED
     Route: 048
  3. POSACONAZOLE [Concomitant]
     Active Substance: POSACONAZOLE
     Indication: Antifungal prophylaxis
     Dosage: 300 MILLIGRAM
     Route: 048
     Dates: start: 20210628, end: 20210827
  4. GRANISETRON [Concomitant]
     Active Substance: GRANISETRON
     Indication: Nausea
     Dosage: 2 MILLIGRAM
     Route: 048
     Dates: start: 20210628, end: 20210816
  5. LEVOFLOXACIN [Concomitant]
     Active Substance: LEVOFLOXACIN
     Indication: Antibiotic prophylaxis
     Dosage: 1 IN 1 D
     Route: 048
     Dates: start: 20210811, end: 20210824
  6. LEVOFLOXACIN [Concomitant]
     Active Substance: LEVOFLOXACIN
     Dosage: 500 MILLIGRAM
     Route: 065
     Dates: start: 20210810
  7. LEVOTHYROXINE SODIUM [Concomitant]
     Active Substance: LEVOTHYROXINE SODIUM
     Indication: Thyroidectomy
     Dosage: 75 MILLIGRAM
     Route: 048
     Dates: start: 20170418
  8. MINIRIN [Concomitant]
     Active Substance: DESMOPRESSIN ACETATE
     Indication: Diabetes insipidus
     Dosage: .15 MILLIGRAM
     Route: 048
     Dates: start: 20170418
  9. MINIRIN [Concomitant]
     Active Substance: DESMOPRESSIN ACETATE
     Dates: start: 2020
  10. DEXAMETHASONE SODIUM PHOSPHATE\GENTAMICIN SULFATE [Concomitant]
     Active Substance: DEXAMETHASONE SODIUM PHOSPHATE\GENTAMICIN SULFATE
     Indication: Conjunctivitis
     Dosage: 8 MILLIGRAM
     Route: 065
     Dates: start: 20210705, end: 20210719
  11. CEFUROXIME [Concomitant]
     Active Substance: CEFUROXIME
     Indication: Antibiotic prophylaxis
     Dosage: 1000 MILLIGRAM
     Route: 065
     Dates: start: 20210804, end: 20210810
  12. LACTULOSE [Concomitant]
     Active Substance: LACTULOSE
     Indication: Product used for unknown indication
     Dosage: FREQUENCY TEXT: NOT PROVIDED
     Route: 065

REACTIONS (1)
  - Back pain [Recovered/Resolved]

NARRATIVE: CASE EVENT DATE: 20210815
